FAERS Safety Report 8771362 (Version 3)
Quarter: 2015Q1

REPORT INFORMATION
  Report Type: Spontaneous
  Country: US (occurrence: US)
  Receive Date: 20120905
  Receipt Date: 20150209
  Transmission Date: 20150721
  Serious: No
  Sender: FDA-Public Use
  Company Number: US-ASTRAZENECA-2012SE57631

PATIENT
  Age: 59 Year
  Sex: Female

DRUGS (4)
  1. SYMBICORT [Suspect]
     Active Substance: BUDESONIDE\FORMOTEROL FUMARATE DIHYDRATE
     Dosage: 160/4.5 2 PUFFS TWICE DAILY
     Route: 055
  2. MORPHINE (NON AZ) [Suspect]
     Active Substance: MORPHINE
     Route: 065
  3. WELLBURTON [Concomitant]
  4. BABY ASPIRIN [Concomitant]
     Active Substance: ASPIRIN

REACTIONS (6)
  - Dyspnoea [Unknown]
  - Chronic obstructive pulmonary disease [Unknown]
  - Malaise [Unknown]
  - Cough [Unknown]
  - Drug hypersensitivity [Unknown]
  - Drug dose omission [Unknown]
